FAERS Safety Report 4915551-0 (Version None)
Quarter: 2006Q1

REPORT INFORMATION
  Report Type: 
  Country: None (occurrence: None)
  Receive Date: 20060217
  Receipt Date: 20050930
  Transmission Date: 20060701
  Serious: Yes (Hospitalization, Other)
  Sender: FDA-Public Use
  Company Number: US-MERCK-0510USA01087

PATIENT
  Age: 71 Year
  Sex: Female
  Weight: 50 kg

DRUGS (3)
  1. VIOXX [Suspect]
     Route: 048
     Dates: start: 20020221, end: 20020321
  2. ASPIRIN [Concomitant]
     Route: 065
     Dates: end: 20020307
  3. LOVENOX [Concomitant]
     Route: 065

REACTIONS (10)
  - ANGINA PECTORIS [None]
  - ARRHYTHMIA [None]
  - CATARACT [None]
  - CEREBROVASCULAR ACCIDENT [None]
  - HEADACHE [None]
  - HEMIANOPIA [None]
  - MITRAL VALVE PROLAPSE [None]
  - MYOCARDIAL INFARCTION [None]
  - ORGAN FAILURE [None]
  - PULMONARY EMBOLISM [None]
